FAERS Safety Report 9574413 (Version 1)
Quarter: 2013Q4

REPORT INFORMATION
  Report Type: Spontaneous
  Country: NL (occurrence: NL)
  Receive Date: 20131001
  Receipt Date: 20131001
  Transmission Date: 20140711
  Serious: Yes (Hospitalization)
  Sender: FDA-Public Use
  Company Number: NL-AMGEN-NLDSP2013068169

PATIENT
  Age: 55 Year
  Sex: Female

DRUGS (4)
  1. NEULASTA [Suspect]
     Indication: PRODUCT USED FOR UNKNOWN INDICATION
     Dosage: 6 MG, ONCE AFTER CHEMO
     Route: 058
     Dates: start: 20130712
  2. CHEMOTHERAPEUTICS [Concomitant]
     Indication: BREAST CANCER
     Dosage: UNK
  3. LYRICA [Concomitant]
     Dosage: 75 MG, QD
  4. OXYNORM [Concomitant]
     Dosage: 5 MG, 6QD

REACTIONS (2)
  - Local swelling [Unknown]
  - Pyrexia [Unknown]
